FAERS Safety Report 24822771 (Version 1)
Quarter: 2025Q1

REPORT INFORMATION
  Report Type: Spontaneous
  Country: US (occurrence: US)
  Receive Date: 20250109
  Receipt Date: 20250109
  Transmission Date: 20250409
  Serious: No
  Sender: JOHNSON AND JOHNSON
  Company Number: US-JNJFOC-20241229677

PATIENT
  Sex: Male

DRUGS (1)
  1. TALQUETAMAB [Suspect]
     Active Substance: TALQUETAMAB
     Indication: Product used for unknown indication
     Route: 065
     Dates: start: 20240916

REACTIONS (6)
  - Ageusia [Unknown]
  - Weight decreased [Unknown]
  - Skin exfoliation [Recovering/Resolving]
  - Nail disorder [Recovering/Resolving]
  - Nail bed tenderness [Recovering/Resolving]
  - Fatigue [Unknown]
